FAERS Safety Report 17690254 (Version 3)
Quarter: 2020Q2

REPORT INFORMATION
  Report Type: Report from Study
  Country: IN (occurrence: IN)
  Receive Date: 20200421
  Receipt Date: 20200622
  Transmission Date: 20200714
  Serious: Yes (Other)
  Sender: FDA-Public Use
  Company Number: NVSC2020IN105121

PATIENT
  Age: 63 Year
  Sex: Male
  Weight: 67.5 kg

DRUGS (1)
  1. GALVUS MET [Suspect]
     Active Substance: METFORMIN HYDROCHLORIDE\VILDAGLIPTIN
     Indication: DIABETES MELLITUS
     Dosage: 1 DF, BID (500 MG METFORMIN, 50 MG VILDAGLIPTIN, 1-0-1 DOSING)
     Route: 048

REACTIONS (6)
  - Blood cholesterol increased [Unknown]
  - Hyperglycaemia [Unknown]
  - Gastrointestinal disorder [Unknown]
  - Blood glucose increased [Unknown]
  - Myocardial infarction [Unknown]
  - Overweight [Unknown]

NARRATIVE: CASE EVENT DATE: 20200411
